FAERS Safety Report 11849588 (Version 1)
Quarter: 2015Q4

REPORT INFORMATION
  Report Type: Report from Study
  Country: US (occurrence: US)
  Receive Date: 20151218
  Receipt Date: 20151218
  Transmission Date: 20160305
  Serious: Yes (Other)
  Sender: FDA-Public Use
  Company Number: PHEH2015US026306

PATIENT
  Age: 51 Year
  Sex: Female
  Weight: 79.82 kg

DRUGS (1)
  1. GILENYA [Suspect]
     Active Substance: FINGOLIMOD HYDROCHLORIDE
     Indication: MULTIPLE SCLEROSIS
     Dosage: 0.5 MG, QD
     Route: 048
     Dates: start: 201312, end: 20150911

REACTIONS (1)
  - Goitre [Recovered/Resolved]

NARRATIVE: CASE EVENT DATE: 201504
